FAERS Safety Report 6076395-2 (Version None)
Quarter: 2009Q1

REPORT INFORMATION
  Report Type: 
  Country: None (occurrence: None)
  Receive Date: 20090209
  Receipt Date: 20090123
  Transmission Date: 20090719
  Serious: Yes (Hospitalization)
  Sender: FDA-Public Use
  Company Number: 000257

PATIENT
  Age: 60 Year
  Sex: Male

DRUGS (7)
  1. NEUPRO [Suspect]
     Indication: PARKINSON'S DISEASE
     Dosage: (2 MG QD TRANSDERMAL)
     Route: 062
     Dates: start: 20081101, end: 20090119
  2. NEXIUM [Concomitant]
  3. CARVEDILOL [Concomitant]
  4. NAPROXEN [Concomitant]
  5. ARAVA [Concomitant]
  6. AKINETON /00079503/ [Concomitant]
  7. LISINOPRIL AND HYDROCHLOROTHIAZIDE [Concomitant]

REACTIONS (1)
  - ANGIOEDEMA [None]
